FAERS Safety Report 19450012 (Version 3)
Quarter: 2021Q3

REPORT INFORMATION
  Report Type: Spontaneous
  Country: JP (occurrence: JP)
  Receive Date: 20210622
  Receipt Date: 20210819
  Transmission Date: 20211014
  Serious: Yes (Hospitalization, Disabling, Other)
  Sender: FDA-Public Use
  Company Number: JP-ROCHE-2854216

PATIENT
  Age: 79 Year
  Sex: Male

DRUGS (1)
  1. LUCENTIS [Suspect]
     Active Substance: RANIBIZUMAB
     Indication: NEOVASCULAR AGE-RELATED MACULAR DEGENERATION
     Route: 031
     Dates: start: 20170831, end: 20200625

REACTIONS (10)
  - Contusion [Recovered/Resolved]
  - Disease progression [Not Recovered/Not Resolved]
  - Fall [Unknown]
  - Skin cancer [Recovered/Resolved]
  - Neovascular age-related macular degeneration [Not Recovered/Not Resolved]
  - Subretinal haematoma [Not Recovered/Not Resolved]
  - Retinal haemorrhage [Unknown]
  - Wound dehiscence [Recovered/Resolved]
  - Retinal degeneration [Not Recovered/Not Resolved]
  - Age-related macular degeneration [Recovered/Resolved]

NARRATIVE: CASE EVENT DATE: 201802
